FAERS Safety Report 6700620-5 (Version None)
Quarter: 2010Q2

REPORT INFORMATION
  Report Type: 
  Country: None (occurrence: None)
  Receive Date: 20100426
  Receipt Date: 20100409
  Transmission Date: 20101027
  Serious: Yes (Hospitalization)
  Sender: FDA-Public Use
  Company Number: FR-JNJFOC-20070307159

PATIENT
  Age: 73 Year
  Sex: Male

DRUGS (16)
  1. DECITABINE (DECITABINE) LYOPHILIZED POWDER [Suspect]
     Indication: ACUTE MYELOID LEUKAEMIA
     Dosage: 20 MG/M2, INTRAVENOUS
     Route: 042
     Dates: start: 20070213, end: 20070216
  2. GAVISCON (GAVISCON /00237601/) [Concomitant]
  3. ENALAPRIL MALEATE [Concomitant]
  4. DAFLON (DIOSMIN) [Concomitant]
  5. NEXIUM [Concomitant]
  6. AUGMENTIN (AUGMENTIN /00756801/) [Concomitant]
  7. CIPROFLOXACIN [Concomitant]
  8. PIPERACILLIN AND TAZOBACTAM [Concomitant]
  9. VANCOMYCIN [Concomitant]
  10. CIPROFLOXACIN [Concomitant]
  11. VOLTAREN [Concomitant]
  12. GENTAMICIN [Concomitant]
  13. ZOVIRAX [Concomitant]
  14. FLUCONAZOLE [Concomitant]
  15. ZOLPIDEM TARTRATE [Concomitant]
  16. FENOFIBRATE [Concomitant]

REACTIONS (16)
  - ARTHRITIS [None]
  - CYTOLYTIC HEPATITIS [None]
  - DYSPNOEA [None]
  - FATIGUE [None]
  - FEBRILE BONE MARROW APLASIA [None]
  - HERPES VIRUS INFECTION [None]
  - JOINT ABSCESS [None]
  - JOINT EFFUSION [None]
  - MASS [None]
  - MUSCLE ABSCESS [None]
  - NEUTROPENIA [None]
  - OEDEMA PERIPHERAL [None]
  - ORAL CANDIDIASIS [None]
  - RASH MACULO-PAPULAR [None]
  - SCIATICA [None]
  - SKIN LESION [None]
